FAERS Safety Report 13335726 (Version 3)
Quarter: 2017Q2

REPORT INFORMATION
  Report Type: Spontaneous
  Country: FR (occurrence: FR)
  Receive Date: 20170314
  Receipt Date: 20170615
  Transmission Date: 20170830
  Serious: Yes (Other)
  Sender: FDA-Public Use
  Company Number: FR-JNJFOC-20160801755

PATIENT
  Age: 79 Year
  Sex: Female
  Weight: 48.5 kg

DRUGS (5)
  1. UVEDOSE [Concomitant]
     Active Substance: CHOLECALCIFEROL
     Dosage: PERORAL ONE DOSAGE FACTOR ONCE IN 3 MONTHS.
     Route: 048
  2. SIMPONI [Suspect]
     Active Substance: GOLIMUMAB
     Indication: ANKYLOSING SPONDYLITIS
     Route: 058
     Dates: start: 201503, end: 20170126
  3. COSENTYX [Suspect]
     Active Substance: SECUKINUMAB
     Indication: ANKYLOSING SPONDYLITIS
     Route: 058
     Dates: start: 20170306
  4. TEMERIT DUO [Concomitant]
     Active Substance: HYDROCHLOROTHIAZIDE\NEBIVOLOL HYDROCHLORIDE
     Indication: HYPERTENSION
     Route: 065
     Dates: start: 20161020
  5. TEMERIT [Concomitant]
     Active Substance: NEBIVOLOL
     Indication: HYPERTENSION
     Route: 065
     Dates: start: 20161020

REACTIONS (8)
  - Cataract [Unknown]
  - Myalgia [Unknown]
  - Drug dose omission [Unknown]
  - Accidental exposure to product [Unknown]
  - Injection site erythema [Unknown]
  - Leukoencephalopathy [Unknown]
  - Depression [Not Recovered/Not Resolved]
  - Complication associated with device [Unknown]

NARRATIVE: CASE EVENT DATE: 201602
